FAERS Safety Report 4276051-7 (Version None)
Quarter: 2004Q1

REPORT INFORMATION
  Report Type: 
  Country: None (occurrence: None)
  Receive Date: 20040121
  Receipt Date: 20030711
  Transmission Date: 20041129
  Serious: No
  Sender: FDA-Public Use
  Company Number: US-GLAXOSMITHKLINE-A0416883A

PATIENT
  Age: 27 Year
  Sex: Female

DRUGS (3)
  1. VALTREX [Suspect]
     Dosage: 250MG SEE DOSAGE TEXT
     Route: 048
  2. UNSPECIFIED MEDICATION [Concomitant]
     Route: 048
  3. DENAVIR [Concomitant]
     Route: 065

REACTIONS (2)
  - DRUG INEFFECTIVE [None]
  - HERPES SIMPLEX [None]
